FAERS Safety Report 9132943 (Version 2)
Quarter: 2013Q1

REPORT INFORMATION
  Report Type: Spontaneous
  Country: ES (occurrence: US)
  Receive Date: 20130301
  Receipt Date: 20130306
  Transmission Date: 20140127
  Serious: Yes (Hospitalization, Other)
  Sender: FDA-Public Use
  Company Number: US-PFIZER INC-2013069302

PATIENT
  Age: 16 Year
  Sex: Male
  Weight: 70 kg

DRUGS (2)
  1. PHENYTOIN [Suspect]
     Indication: GRAND MAL CONVULSION
     Dosage: 300 MG, INTENTIONALLY SWALLOWED BETWEEN 25 AND 40 CAPSULES
  2. PHENYTOIN [Suspect]
     Indication: GRAND MAL CONVULSION

REACTIONS (8)
  - Intentional overdose [Recovered/Resolved]
  - Ophthalmoplegia [Recovered/Resolved]
  - Stupor [Recovered/Resolved]
  - Coma [Recovered/Resolved]
  - Dysarthria [Not Recovered/Not Resolved]
  - Clumsiness [Recovered/Resolved]
  - Somnolence [Recovered/Resolved]
  - Ataxia [Recovered/Resolved]
